FAERS Safety Report 6699282-5 (Version None)
Quarter: 2010Q2

REPORT INFORMATION
  Report Type: 
  Country: None (occurrence: None)
  Receive Date: 20100427
  Receipt Date: 20100415
  Transmission Date: 20101027
  Serious: Yes (Hospitalization, Other)
  Sender: FDA-Public Use
  Company Number: PHHY2010JP24880

PATIENT
  Sex: Female

DRUGS (10)
  1. ICL670A ICL+DISTAB [Suspect]
     Indication: MULTIPLE MYELOMA
     Dosage: 375 MG/DAY
     Route: 048
     Dates: start: 20090812, end: 20090818
  2. ICL670A ICL+DISTAB [Suspect]
     Indication: IRON OVERLOAD
     Dosage: 250 MG/DAY
     Route: 048
     Dates: start: 20090819, end: 20100208
  3. DEPAS [Concomitant]
     Dosage: 1 MG, UNK
     Route: 048
     Dates: start: 20090812, end: 20100212
  4. KAKKON-TO [Concomitant]
     Dosage: 7.5 MG, UNK
     Route: 048
     Dates: start: 20090928, end: 20091023
  5. HICEE [Concomitant]
     Dosage: 4 G, UNK
     Route: 048
     Dates: start: 20091019, end: 20100128
  6. POTASSIUM PHOSPHATE DIBASIC [Concomitant]
     Dosage: UNK
     Route: 048
     Dates: start: 20091019, end: 20100212
  7. RED BLOOD CELLS, LEUCOCYTE DEPLETED [Concomitant]
     Dosage: 2 UNITS EVERY THREE WEEKS
     Dates: start: 20090819, end: 20091218
  8. RED BLOOD CELLS, LEUCOCYTE DEPLETED [Concomitant]
     Dosage: 2 UNITS EVERY FOUR AND HALF WEEKS
     Dates: start: 20091218, end: 20100118
  9. RED BLOOD CELLS, LEUCOCYTE DEPLETED [Concomitant]
     Dosage: 2 UNITS EVERY THREE WEEKS
     Dates: start: 20100118, end: 20100208
  10. PENMALIN [Concomitant]

REACTIONS (7)
  - BLOOD LACTATE DEHYDROGENASE INCREASED [None]
  - BRONCHOPNEUMONIA [None]
  - GAMMA-GLUTAMYLTRANSFERASE INCREASED [None]
  - HAEMOGLOBIN DECREASED [None]
  - HEARING IMPAIRED [None]
  - RED BLOOD CELL COUNT DECREASED [None]
  - RENAL IMPAIRMENT [None]
